FAERS Safety Report 19063619 (Version 8)
Quarter: 2023Q4

REPORT INFORMATION
  Report Type: Spontaneous
  Country: US (occurrence: US)
  Receive Date: 20210326
  Receipt Date: 20231219
  Transmission Date: 20240109
  Serious: Yes (Hospitalization, Other)
  Sender: FDA-Public Use
  Company Number: US-PFIZER INC-2021241084

PATIENT
  Age: 78 Year
  Sex: Female
  Weight: 51.03 kg

DRUGS (2)
  1. XELJANZ [Suspect]
     Active Substance: TOFACITINIB CITRATE
     Indication: Rheumatoid arthritis
     Dosage: 5 MG, 2X/DAY
     Route: 048
  2. TRAMADOL [Concomitant]
     Active Substance: TRAMADOL\TRAMADOL HYDROCHLORIDE
     Indication: Spinal stenosis
     Dosage: 50 MG, 4X/DAY

REACTIONS (10)
  - Pneumonia [Unknown]
  - COVID-19 [Unknown]
  - Skin lesion [Unknown]
  - Furuncle [Not Recovered/Not Resolved]
  - Drug ineffective [Unknown]
  - Oropharyngeal discomfort [Unknown]
  - Musculoskeletal stiffness [Not Recovered/Not Resolved]
  - Eye disorder [Unknown]
  - Stomatitis [Unknown]
  - Pruritus [Unknown]

NARRATIVE: CASE EVENT DATE: 20210101
